FAERS Safety Report 5612471-3 (Version None)
Quarter: 2008Q1

REPORT INFORMATION
  Report Type: 
  Country: None (occurrence: None)
  Receive Date: 20080131
  Receipt Date: 20080131
  Transmission Date: 20080703
  Serious: Yes (Other)
  Sender: FDA-Public Use
  Company Number: None

PATIENT
  Age: 48 Year
  Sex: Female
  Weight: 73.4827 kg

DRUGS (1)
  1. LEVAQUIN [Suspect]
     Indication: GASTROENTERITIS
     Dosage: 500 MG. ONCE/DAY
     Dates: start: 20071228, end: 20071228

REACTIONS (12)
  - BURNING SENSATION [None]
  - CONFUSIONAL STATE [None]
  - DEHYDRATION [None]
  - DRY THROAT [None]
  - DYSPHAGIA [None]
  - FEELING ABNORMAL [None]
  - FLUSHING [None]
  - HYPERSENSITIVITY [None]
  - PARAESTHESIA [None]
  - SOMNOLENCE [None]
  - TENDON DISORDER [None]
  - VISUAL DISTURBANCE [None]
